FAERS Safety Report 10783903 (Version 4)
Quarter: 2015Q3

REPORT INFORMATION
  Report Type: Report from Study
  Country: MX (occurrence: MX)
  Receive Date: 20150210
  Receipt Date: 20150818
  Transmission Date: 20151125
  Serious: Yes (Other)
  Sender: FDA-Public Use
  Company Number: PHHY2014MX013583

PATIENT
  Sex: Male
  Weight: 102 kg

DRUGS (3)
  1. EXFORGE HCT [Suspect]
     Active Substance: AMLODIPINE BESYLATE\HYDROCHLOROTHIAZIDE\VALSARTAN
     Indication: HYPERTENSION
     Dosage: 1 DF, QD (320/10/25 MG )
     Route: 048
     Dates: start: 201312
  2. EXFORGE HCT [Suspect]
     Active Substance: AMLODIPINE BESYLATE\HYDROCHLOROTHIAZIDE\VALSARTAN
     Indication: CARDIAC FAILURE
     Dosage: 1 DF, QD (10 MG)
     Route: 048
  3. FUROSEMIDE. [Concomitant]
     Active Substance: FUROSEMIDE
     Indication: DIURETIC THERAPY
     Dosage: 2 OT, QD
     Route: 065

REACTIONS (16)
  - Pulmonary oedema [Not Recovered/Not Resolved]
  - General physical health deterioration [Not Recovered/Not Resolved]
  - Malaise [Unknown]
  - Visual impairment [Unknown]
  - Blindness unilateral [Unknown]
  - Weight decreased [Not Recovered/Not Resolved]
  - Nasal neoplasm [Recovered/Resolved]
  - Condition aggravated [Not Recovered/Not Resolved]
  - Renal injury [Unknown]
  - Hypokinesia [Not Recovered/Not Resolved]
  - Cardiac failure [Not Recovered/Not Resolved]
  - Insomnia [Not Recovered/Not Resolved]
  - Back disorder [Not Recovered/Not Resolved]
  - Renal failure [Not Recovered/Not Resolved]
  - Ascites [Not Recovered/Not Resolved]
  - Eye injury [Unknown]
